FAERS Safety Report 7470347-3 (Version None)
Quarter: 2011Q2

REPORT INFORMATION
  Report Type: 
  Country: None (occurrence: None)
  Receive Date: 20110510
  Receipt Date: 20110428
  Transmission Date: 20111010
  Serious: Yes (Other)
  Sender: FDA-Public Use
  Company Number: US-JNJFOC-20110500055

PATIENT
  Sex: Female
  Weight: 90.72 kg

DRUGS (5)
  1. LEVAQUIN [Suspect]
     Indication: HAEMATOMA
     Route: 048
  2. TOPROL-XL [Concomitant]
     Indication: BLOOD PRESSURE
     Route: 048
  3. VESICARE [Concomitant]
     Indication: BLADDER SPASM
     Route: 048
  4. MECLIZINE [Concomitant]
     Indication: INNER EAR DISORDER
     Route: 048
  5. XANAX [Concomitant]
     Indication: INNER EAR DISORDER
     Route: 048

REACTIONS (3)
  - ARTHRALGIA [None]
  - POST PROCEDURAL INFECTION [None]
  - PAIN [None]
